FAERS Safety Report 10404321 (Version 1)
Quarter: 2014Q1

REPORT INFORMATION
  Report Type: Spontaneous
  Country: US (occurrence: None)
  Receive Date: 20131226
  Receipt Date: 20131226
  Transmission Date: 20141002
  Serious: Yes (Other)
  Sender: FDA-Public Use
  Company Number: PHEH2009US16719

PATIENT
  Age: 91 Year
  Sex: Female

DRUGS (6)
  1. EXFORGE [Suspect]
     Indication: HYPERTENSION
     Route: 048
     Dates: start: 20090806
  2. AMLODIPINE BESILATE,BENAZEPRIL HYDROCHLORIDE [Suspect]
     Indication: HYPERTENSION
     Route: 048
     Dates: end: 20090806
  3. MULTAQ (DRONEDARONE HYDROCHLORIDE) [Concomitant]
  4. ARMOUR (ARMOUR) [Concomitant]
  5. COUMADIN (WARFARIN SODIUM) [Concomitant]
  6. LOTREL (AMLODIPINE, BENAZEPRIL HYDROCHLORIDE) [Concomitant]

REACTIONS (4)
  - Hypotension [None]
  - Pollakiuria [None]
  - Dehydration [None]
  - Dizziness [None]
